FAERS Safety Report 23786523 (Version 3)
Quarter: 2024Q2

REPORT INFORMATION
  Report Type: Spontaneous
  Country: US (occurrence: US)
  Receive Date: 20240426
  Receipt Date: 20240513
  Transmission Date: 20240715
  Serious: Yes (Hospitalization)
  Sender: FDA-Public Use
  Company Number: US-LEO Pharma-369729

PATIENT
  Age: 63 Year
  Sex: Male

DRUGS (2)
  1. ADBRY [Suspect]
     Active Substance: TRALOKINUMAB-LDRM
     Indication: Dermatitis atopic
     Dosage: 600 MG UNDER THE SKIN ON DAY 1, THEN 300 MG UNDER THE SKIN EVERY 14 DAYS
     Route: 058
  2. ADBRY [Suspect]
     Active Substance: TRALOKINUMAB-LDRM
     Indication: Dermatitis atopic
     Dosage: 600 MG UNDER THE SKIN ON DAY 1, THEN 300 MG UNDER THE SKIN EVERY 14 DAYS
     Route: 058
     Dates: start: 202404

REACTIONS (1)
  - Hyperglycaemia [Unknown]
